FAERS Safety Report 9822324 (Version 1)
Quarter: 2014Q1

REPORT INFORMATION
  Report Type: Report from Study
  Country: CA (occurrence: CA)
  Receive Date: 20140116
  Receipt Date: 20140116
  Transmission Date: 20141002
  Serious: Yes (Other)
  Sender: FDA-Public Use
  Company Number: CA-JNJFOC-20140105635

PATIENT
  Age: 68 Year
  Sex: Female

DRUGS (7)
  1. REMICADE [Suspect]
     Indication: RHEUMATOID ARTHRITIS
     Route: 042
  2. REMICADE [Suspect]
     Indication: RHEUMATOID ARTHRITIS
     Route: 042
     Dates: start: 20131127
  3. GLYCON [Concomitant]
     Route: 065
  4. FOLIC ACID [Concomitant]
     Route: 065
  5. PREDNISONE [Concomitant]
     Route: 065
  6. RANITIDINE [Concomitant]
     Route: 065
  7. COVERSYL [Concomitant]
     Route: 065

REACTIONS (5)
  - Syncope [Unknown]
  - Pallor [Unknown]
  - Hyperhidrosis [Unknown]
  - Blood pressure decreased [Unknown]
  - Infusion related reaction [Unknown]
